FAERS Safety Report 5371366-3 (Version None)
Quarter: 2007Q2

REPORT INFORMATION
  Report Type: 
  Country: None (occurrence: None)
  Receive Date: 20070622
  Receipt Date: 20070606
  Transmission Date: 20071010
  Serious: Yes (Death, Life-Threatening)
  Sender: FDA-Public Use
  Company Number: FR-JNJFOC-20070506983

PATIENT
  Age: 70 Year
  Sex: Male

DRUGS (2)
  1. DECITABINE (DECITABINE) LYOPHILIZED POWDER [Suspect]
     Indication: ACUTE MYELOID LEUKAEMIA
     Dosage: INTRAVENOUS
     Route: 042
  2. BISOPROLOL (BISOPROLOL) UNSPECIFIED [Concomitant]

REACTIONS (8)
  - APLASIA [None]
  - CELLULITIS [None]
  - EXOPHTHALMOS [None]
  - FUNGAL SEPSIS [None]
  - NASAL NECROSIS [None]
  - NEUTROPENIA [None]
  - SEPTIC SHOCK [None]
  - SINUSITIS [None]
